FAERS Safety Report 17596527 (Version 4)
Quarter: 2021Q4

REPORT INFORMATION
  Report Type: Report from Study
  Country: FR (occurrence: FR)
  Receive Date: 20200330
  Receipt Date: 20211126
  Transmission Date: 20220303
  Serious: Yes (Other)
  Sender: FDA-Public Use
  Company Number: FR-LUNDBECK-DKLU3014285

PATIENT
  Age: 8 Year
  Sex: Female
  Weight: 23.3 kg

DRUGS (7)
  1. VORTIOXETINE [Suspect]
     Active Substance: VORTIOXETINE
     Indication: Major depression
     Dosage: UNK
     Route: 048
     Dates: start: 20200201, end: 20200315
  2. DESLORATADINE [Concomitant]
     Active Substance: DESLORATADINE
     Indication: Pruritus
     Dosage: 5 MILLILITER
     Route: 048
     Dates: start: 20200305, end: 20200313
  3. ACETAMINOPHEN [Concomitant]
     Active Substance: ACETAMINOPHEN
     Indication: Abdominal pain upper
     Dosage: 500 MILLIGRAM
     Route: 048
     Dates: start: 20200309, end: 20200309
  4. ACETAMINOPHEN [Concomitant]
     Active Substance: ACETAMINOPHEN
     Indication: Abdominal pain upper
     Dosage: 500 MILLIGRAM
     Route: 048
     Dates: start: 20200309, end: 20200309
  5. ACETAMINOPHEN [Concomitant]
     Active Substance: ACETAMINOPHEN
     Dosage: 500 MILLIGRAM
     Route: 048
     Dates: start: 20200309, end: 20200309
  6. PHLOROGLUCINOL DIHYDRATE [Concomitant]
     Active Substance: PHLOROGLUCINOL DIHYDRATE
     Indication: Abdominal pain upper
     Dosage: 80 MILLIGRAM, BID
     Route: 048
     Dates: start: 20200309, end: 20200309
  7. PHLOROGLUCINOL DIHYDRATE [Concomitant]
     Active Substance: PHLOROGLUCINOL DIHYDRATE
     Dosage: 80 MILLIGRAM
     Route: 048
     Dates: start: 20200312, end: 20200312

REACTIONS (1)
  - Mania [Not Recovered/Not Resolved]

NARRATIVE: CASE EVENT DATE: 20200315
